FAERS Safety Report 9359988 (Version 1)
Quarter: 2013Q2

REPORT INFORMATION
  Report Type: Spontaneous
  Country: US (occurrence: US)
  Receive Date: 20130621
  Receipt Date: 20130621
  Transmission Date: 20140414
  Serious: Yes (Hospitalization)
  Sender: FDA-Public Use
  Company Number: US-TEVA-413698USA

PATIENT
  Age: 73 Year
  Sex: Male

DRUGS (1)
  1. TOPIRAMATE [Suspect]
     Indication: HEADACHE
     Route: 065

REACTIONS (4)
  - Disorientation [Recovering/Resolving]
  - Perseveration [Recovering/Resolving]
  - Headache [Unknown]
  - Vision blurred [Unknown]
